FAERS Safety Report 14816292 (Version 1)
Quarter: 2018Q2

REPORT INFORMATION
  Report Type: Spontaneous
  Country: CH (occurrence: CH)
  Receive Date: 20180426
  Receipt Date: 20180426
  Transmission Date: 20180711
  Serious: Yes (Other)
  Sender: FDA-Public Use
  Company Number: CH-SA-2018SA112830

PATIENT
  Age: 4 Month
  Sex: Male
  Weight: 2.9 kg

DRUGS (9)
  1. PARACETAMOL [Suspect]
     Active Substance: ACETAMINOPHEN
     Route: 064
     Dates: start: 20170510, end: 20170510
  2. CELEBREX [Suspect]
     Active Substance: CELECOXIB
     Route: 064
     Dates: start: 20170510, end: 20170513
  3. PROFENID [Suspect]
     Active Substance: KETOPROFEN
     Route: 064
     Dates: start: 20170510, end: 20170510
  4. PROPOFOL. [Suspect]
     Active Substance: PROPOFOL
     Route: 064
     Dates: start: 20170510, end: 20170510
  5. ATRACURIUM [Suspect]
     Active Substance: ATRACURIUM
     Route: 064
     Dates: start: 20170510, end: 20170510
  6. FENTANYL. [Suspect]
     Active Substance: FENTANYL
     Route: 064
     Dates: start: 20170510, end: 20170510
  7. ACUPAN [Suspect]
     Active Substance: NEFOPAM HYDROCHLORIDE
     Route: 064
     Dates: start: 20170510, end: 20170510
  8. ENOXAPARIN SODIUM. [Suspect]
     Active Substance: ENOXAPARIN SODIUM
     Route: 064
     Dates: start: 20170510
  9. CEFAZOLINE [Suspect]
     Active Substance: CEFAZOLIN SODIUM
     Route: 064
     Dates: start: 20170510, end: 20170510

REACTIONS (3)
  - Microcephaly [Unknown]
  - Jaundice neonatal [Recovered/Resolved]
  - Foetal exposure during pregnancy [Unknown]

NARRATIVE: CASE EVENT DATE: 20180114
